FAERS Safety Report 5347855-4 (Version None)
Quarter: 2007Q2

REPORT INFORMATION
  Report Type: 
  Country: None (occurrence: None)
  Receive Date: 20070606
  Receipt Date: 20070605
  Transmission Date: 20071010
  Serious: Yes (Other)
  Sender: FDA-Public Use
  Company Number: IT-BRISTOL-MYERS SQUIBB COMPANY-13802996

PATIENT
  Age: 59 Year
  Sex: Female

DRUGS (6)
  1. CYCLOPHOSPHAMIDE [Suspect]
     Indication: BREAST CANCER
  2. PACLITAXEL [Suspect]
     Indication: BREAST CANCER
  3. TAMOXIFEN CITRATE [Suspect]
     Indication: BREAST CANCER
  4. EPIRUBICIN [Suspect]
     Indication: BREAST CANCER
  5. FLUOROURACIL [Suspect]
     Indication: BREAST CANCER
  6. EXEMESTANE [Suspect]
     Indication: BREAST CANCER

REACTIONS (2)
  - MALIGNANT NEOPLASM PROGRESSION [None]
  - NEUROPATHY PERIPHERAL [None]
